FAERS Safety Report 9813161 (Version 1)
Quarter: 2014Q1

REPORT INFORMATION
  Report Type: Spontaneous
  Country: MY (occurrence: None)
  Receive Date: 20140109
  Receipt Date: 20140109
  Transmission Date: 20141002
  Serious: Yes (Disabling)
  Sender: FDA-Public Use
  Company Number: 2107681

PATIENT
  Age: 8 Year
  Sex: Female

DRUGS (2)
  1. VINCRISTINE SULFATE [Suspect]
     Indication: MEDULLOBLASTOMA
     Route: 042
  2. CO-TRIMOXAZOLE [Concomitant]

REACTIONS (3)
  - Muscular weakness [None]
  - Gait disturbance [None]
  - Areflexia [None]
